FAERS Safety Report 9746251 (Version 1)
Quarter: 2013Q4

REPORT INFORMATION
  Report Type: Spontaneous
  Country: US (occurrence: None)
  Receive Date: 20131209
  Receipt Date: 20131209
  Transmission Date: 20140711
  Serious: Yes (Life-Threatening, Other)
  Sender: FDA-Public Use
  Company Number: None

PATIENT
  Age: 32 Week
  Sex: Male
  Weight: 118.39 kg

DRUGS (2)
  1. PROZAC [Suspect]
     Dosage: 4 20MG PROZAC 90MG AMPHETAMINE, PROZAC QA AMP TID, TAKEN BY MOUTH
     Dates: start: 20131030, end: 20131121
  2. AMPHETAMINE SALTS [Suspect]
     Dosage: 30MNG TID, THREE TIMES DAILY, TAKEN BY MOUTH

REACTIONS (8)
  - Euphoric mood [None]
  - Feeling abnormal [None]
  - Aggression [None]
  - Dissociation [None]
  - Hallucination [None]
  - Body temperature fluctuation [None]
  - Pyrexia [None]
  - Pain [None]
